FAERS Safety Report 9046261 (Version 1)
Quarter: 2013Q1

REPORT INFORMATION
  Report Type: Spontaneous
  Country: US (occurrence: None)
  Receive Date: 20130128
  Receipt Date: 20130128
  Transmission Date: 20140127
  Serious: No
  Sender: FDA-Public Use
  Company Number: None

PATIENT
  Age: 56 Year
  Sex: Male
  Weight: 79.9 kg

DRUGS (3)
  1. REGORAFENIB [Suspect]
     Indication: GASTROINTESTINAL STROMAL TUMOUR
     Route: 048
     Dates: start: 20121126, end: 20130113
  2. REGORAFENIB [Suspect]
     Indication: METASTASIS
     Route: 048
     Dates: start: 20121126, end: 20130113
  3. REGORAFENIB [Suspect]
     Indication: METASTASES TO PERITONEUM
     Route: 048
     Dates: start: 20121126, end: 20130113

REACTIONS (3)
  - Abdominal pain [None]
  - Arthralgia [None]
  - Condition aggravated [None]
